FAERS Safety Report 13030422 (Version 1)
Quarter: 2016Q4

REPORT INFORMATION
  Report Type: Spontaneous
  Country: US (occurrence: US)
  Receive Date: 20161214
  Receipt Date: 20161214
  Transmission Date: 20170207
  Serious: Yes (Death)
  Sender: FDA-Public Use
  Company Number: None

PATIENT
  Age: 15 Year
  Sex: Male

DRUGS (1)
  1. TOBRAMYCIN NEB 30OMG/ 5ML NOVARTIS [Suspect]
     Active Substance: TOBRAMYCIN
     Indication: PSEUDOMONAS INFECTION
     Dosage: 300MG TWICE DAILY VIA NEBULIZER
     Dates: start: 20140616

REACTIONS (1)
  - Death [None]

NARRATIVE: CASE EVENT DATE: 20161130
